FAERS Safety Report 24267831 (Version 1)
Quarter: 2024Q3

REPORT INFORMATION
  Report Type: Spontaneous
  Country: PL (occurrence: PL)
  Receive Date: 20240830
  Receipt Date: 20240830
  Transmission Date: 20241016
  Serious: Yes (Hospitalization, Other)
  Sender: ORGANON
  Company Number: None

PATIENT
  Sex: Male

DRUGS (3)
  1. MONTELUKAST SODIUM [Suspect]
     Active Substance: MONTELUKAST\MONTELUKAST SODIUM
     Indication: Drug hypersensitivity
     Dosage: INITIALLY WAS TAKEN 4 MG (ONCE A DAY, FROM 2014/11/06, ON AVERAGE FOR 9-10 MONTHS A YEAR WITH A SUMM
     Route: 048
     Dates: start: 20141106, end: 20160830
  2. MONTELUKAST SODIUM [Suspect]
     Active Substance: MONTELUKAST\MONTELUKAST SODIUM
     Dosage: 5 MG (ONCE A DAY, WITH A SUMMER BREAK OF 2-3 MONTHS).
     Route: 048
     Dates: start: 20160830, end: 20180930
  3. EUTHYROX [Concomitant]
     Active Substance: LEVOTHYROXINE SODIUM
     Indication: Hypothyroidism
     Dosage: 62.5 MILLIGRAM

REACTIONS (6)
  - Aspartate aminotransferase abnormal [Unknown]
  - Pyelocaliectasis [Unknown]
  - Alanine aminotransferase abnormal [Unknown]
  - Ultrasound liver abnormal [Unknown]
  - Splenomegaly [Unknown]
  - Gamma-glutamyltransferase abnormal [Unknown]

NARRATIVE: CASE EVENT DATE: 20170608
